FAERS Safety Report 18208968 (Version 1)
Quarter: 2020Q3

REPORT INFORMATION
  Report Type: Spontaneous
  Country: FR (occurrence: FR)
  Receive Date: 20200828
  Receipt Date: 20200828
  Transmission Date: 20201103
  Serious: Yes (Hospitalization)
  Sender: FDA-Public Use
  Company Number: FR-BRISTOL-MYERS SQUIBB COMPANY-BMS-2020-067399

PATIENT
  Age: 62 Year
  Sex: Male
  Weight: 83 kg

DRUGS (1)
  1. HYDREA [Suspect]
     Active Substance: HYDROXYUREA
     Indication: MYELOPROLIFERATIVE NEOPLASM
     Dosage: 2.5 DOSAGE FORM, 1 DAY
     Route: 048
     Dates: start: 20170901, end: 20200616

REACTIONS (1)
  - Necrotic angiodermatitis [Recovered/Resolved]

NARRATIVE: CASE EVENT DATE: 20200513
